FAERS Safety Report 18242322 (Version 1)
Quarter: 2020Q3

REPORT INFORMATION
  Report Type: Spontaneous
  Country: US (occurrence: US)
  Receive Date: 20200908
  Receipt Date: 20200908
  Transmission Date: 20201103
  Serious: Yes (Other)
  Sender: FDA-Public Use
  Company Number: NVSC2020US242828

PATIENT
  Age: 83 Year
  Sex: Female

DRUGS (2)
  1. BEOVU [Suspect]
     Active Substance: BROLUCIZUMAB-DBLL
     Dosage: 0.05 ML, PRN
     Route: 042
     Dates: end: 20200812
  2. BEOVU [Suspect]
     Active Substance: BROLUCIZUMAB-DBLL
     Indication: NEOVASCULAR AGE-RELATED MACULAR DEGENERATION
     Dosage: 0.05 ML, PRN
     Route: 042
     Dates: start: 20200219

REACTIONS (5)
  - Vitreous floaters [Unknown]
  - Retinal ischaemia [Unknown]
  - Vitritis [Unknown]
  - Incorrect route of product administration [Unknown]
  - Vitreous haematoma [Unknown]

NARRATIVE: CASE EVENT DATE: 20200828
